FAERS Safety Report 23869840 (Version 1)
Quarter: 2024Q2

REPORT INFORMATION
  Report Type: Spontaneous
  Country: ZA (occurrence: None)
  Receive Date: 20240517
  Receipt Date: 20240517
  Transmission Date: 20240716
  Serious: Yes (Other)
  Sender: FDA-Public Use
  Company Number: 2024A112511

PATIENT
  Age: 53 Year
  Sex: Female

DRUGS (5)
  1. DAPAGLIFLOZIN PROPANEDIOL [Suspect]
     Active Substance: DAPAGLIFLOZIN PROPANEDIOL
     Indication: Diabetes mellitus
     Route: 048
  2. ASPAVOR 20 MG [Concomitant]
     Indication: Blood cholesterol
  3. NUZAK 20 MG [Concomitant]
     Indication: Depression
     Route: 048
  4. JALRAMET 50/1000 MG [Concomitant]
     Indication: Diabetes mellitus
     Route: 048
  5. URBANOL 5 MG [Concomitant]
     Indication: Anxiety
     Route: 048

REACTIONS (1)
  - Mental disorder [Unknown]
